FAERS Safety Report 22768280 (Version 2)
Quarter: 2023Q4

REPORT INFORMATION
  Report Type: Spontaneous
  Country: US (occurrence: US)
  Receive Date: 20230731
  Receipt Date: 20231027
  Transmission Date: 20240110
  Serious: No
  Sender: FDA-Public Use
  Company Number: US-SA-SAC20230726001320

PATIENT
  Age: 67 Year
  Sex: Male

DRUGS (1)
  1. DUPIXENT [Suspect]
     Active Substance: DUPILUMAB
     Dosage: 300 MG, QOW
     Route: 058

REACTIONS (7)
  - Dry skin [Unknown]
  - Bruxism [Unknown]
  - Sleep disorder [Unknown]
  - Eczema [Not Recovered/Not Resolved]
  - Pruritus [Unknown]
  - Dry eye [Unknown]
  - Toothache [Unknown]

NARRATIVE: CASE EVENT DATE: 20220101
